FAERS Safety Report 8179738-9 (Version None)
Quarter: 2012Q1

REPORT INFORMATION
  Report Type: 
  Country: None (occurrence: None)
  Receive Date: 20120302
  Receipt Date: 20120222
  Transmission Date: 20120608
  Serious: Yes (Hospitalization)
  Sender: FDA-Public Use
  Company Number: US-BAYER-2011-069347

PATIENT
  Age: 19 Year
  Sex: Female
  Weight: 90.703 kg

DRUGS (11)
  1. YASMIN [Suspect]
     Indication: CONTRACEPTION
     Dosage: UNK
     Route: 048
     Dates: start: 20050601, end: 20091001
  2. ARMODAFINIL [Concomitant]
     Dosage: DAILY DOSE 150 MG
     Dates: start: 20091015
  3. VICODIN [Concomitant]
     Dosage: UNK
     Dates: start: 20091013
  4. AMOXICILLIN [Concomitant]
     Dosage: UNK
     Dates: start: 20091030
  5. FLUCONAZOLE [Concomitant]
     Dosage: DAILY DOSE 150 MG
     Dates: start: 20091026
  6. DOCUSATE CALCIUM [Concomitant]
     Dosage: DAILY DOSE 240 MG
     Dates: start: 20090907
  7. FENUGREEK (HERB) [Concomitant]
     Dosage: UNK
     Dates: start: 20091030
  8. CEPHALEXIN [Concomitant]
     Dosage: DAILY DOSE 250 MG
     Dates: start: 20090721
  9. OB-NATAL [Concomitant]
     Dosage: UNK
     Dates: start: 20090530, end: 20090920
  10. REGLAN [Concomitant]
     Dosage: DAILY DOSE 10 MG
     Dates: start: 20091014
  11. YAZ [Suspect]
     Indication: CONTRACEPTION
     Dosage: UNK
     Route: 048
     Dates: start: 20050601, end: 20091001

REACTIONS (4)
  - INJURY [None]
  - PAIN [None]
  - CHOLECYSTITIS CHRONIC [None]
  - GALLBLADDER DISORDER [None]
